FAERS Safety Report 9746282 (Version 1)
Quarter: 2013Q4

REPORT INFORMATION
  Report Type: Spontaneous
  Country: BR (occurrence: BR)
  Receive Date: 20131211
  Receipt Date: 20131211
  Transmission Date: 20140711
  Serious: Yes (Death, Hospitalization)
  Sender: FDA-Public Use
  Company Number: PHHY2013BR141863

PATIENT
  Age: 27 Year
  Sex: Female

DRUGS (3)
  1. OXALIPLATIN [Suspect]
     Indication: COLORECTAL ADENOCARCINOMA
  2. 5-FLUOROURACIL [Suspect]
     Indication: COLORECTAL ADENOCARCINOMA
  3. LEUCOVORIN CALCIUM [Suspect]
     Indication: COLORECTAL ADENOCARCINOMA

REACTIONS (9)
  - Oncologic complication [Fatal]
  - Colorectal adenocarcinoma [Fatal]
  - Posterior reversible encephalopathy syndrome [Unknown]
  - Convulsion [Unknown]
  - Visual impairment [Unknown]
  - Vomiting [Unknown]
  - Confusional state [Unknown]
  - Depressed level of consciousness [Unknown]
  - Pyrexia [Unknown]
